FAERS Safety Report 9491425 (Version 2)
Quarter: 2013Q1

REPORT INFORMATION
  Report Type: Not Available
  Country: US (occurrence: US)
  Receive Date: 20120619
  Receipt Date: 20120619
  Transmission Date: 20140127
  Serious: Yes (Life-Threatening)
  Sender: FDA-Public Use
  Company Number: US-LUNDBECK-DKLU1073064

PATIENT
  Age: 16 None
  Sex: Male
  Weight: 60.6 kg

DRUGS (4)
  1. CLOBAZAM [Suspect]
     Indication: LENNOX-GASTAUT SYNDROME
     Route: 048
     Dates: start: 20060404
  2. CEFAZOLIN [Concomitant]
     Indication: PROPHYLAXIS
     Route: 050
     Dates: start: 20110908, end: 20110912
  3. BANZEL [Concomitant]
     Indication: PRODUCT USED FOR UNKNOWN INDICATION
     Route: 048
  4. MORPHINE [Concomitant]
     Indication: PAIN
     Route: 050
     Dates: start: 20110908, end: 20110912

REACTIONS (1)
  - Respiratory failure [Recovered/Resolved]
